FAERS Safety Report 5157659-3 (Version None)
Quarter: 2006Q4

REPORT INFORMATION
  Report Type: 
  Country: None (occurrence: None)
  Receive Date: 20061127
  Receipt Date: 20050914
  Transmission Date: 20070319
  Serious: Yes (Other)
  Sender: FDA-Public Use
  Company Number: US-ROCHE-417916

PATIENT
  Age: 63 Year
  Sex: Female
  Weight: 60.3 kg

DRUGS (1)
  1. BONIVA [Suspect]
     Indication: OSTEOPOROSIS
     Route: 048
     Dates: start: 20050901, end: 20050901

REACTIONS (2)
  - MUSCULAR WEAKNESS [None]
  - MYALGIA [None]
